FAERS Safety Report 8494359-6 (Version None)
Quarter: 2012Q3

REPORT INFORMATION
  Report Type: 
  Country: None (occurrence: None)
  Receive Date: 20120709
  Receipt Date: 20120628
  Transmission Date: 20120928
  Serious: Yes (Hospitalization, Other)
  Sender: FDA-Public Use
  Company Number: US-CELGENEUS-163-20785-12063895

PATIENT
  Sex: Male

DRUGS (7)
  1. DEXAMETHASONE [Concomitant]
     Route: 065
  2. MULTI-VITAMINS [Concomitant]
     Route: 065
  3. SENOKOT [Concomitant]
     Route: 065
  4. THALOMID [Suspect]
     Indication: MULTIPLE MYELOMA
     Dosage: 200 MILLIGRAM
     Route: 048
     Dates: start: 20120225
  5. ASPIRIN [Concomitant]
     Route: 065
  6. DULCOLAX [Concomitant]
     Route: 065
  7. VELCADE [Concomitant]
     Route: 065

REACTIONS (2)
  - CORONARY ARTERY STENOSIS [None]
  - SYNCOPE [None]
